FAERS Safety Report 4466979-7 (Version None)
Quarter: 2004Q4

REPORT INFORMATION
  Report Type: 
  Country: None (occurrence: None)
  Receive Date: 20041001
  Receipt Date: 20040922
  Transmission Date: 20050328
  Serious: Yes (Death)
  Sender: FDA-Public Use
  Company Number: 04H-163-0274286-00

PATIENT

DRUGS (8)
  1. PLEGISOL SOLUTION IN FLEX. CONTAINERS (PLEGISOL SOLUTION) (CARDIOPLEGI [Suspect]
     Indication: SURGERY
  2. SODIUM BICARBONATE 8.4% INJECTION, USP, 50MEQ TOTAL, 50ML FT VIAL (SOD [Suspect]
     Indication: SURGERY
  3. GLUCOSE INJECTION [Suspect]
     Indication: SURGERY
  4. GLUTAMATE [Suspect]
     Indication: SURGERY
  5. ASPARTATE [Suspect]
     Indication: SURGERY
  6. MSA/MSG [Suspect]
     Indication: SURGERY
  7. POTASSIUM CHLORIDE [Suspect]
     Indication: SURGERY
  8. WATER [Suspect]

REACTIONS (1)
  - DEATH [None]
